FAERS Safety Report 11271617 (Version 2)
Quarter: 2015Q3

REPORT INFORMATION
  Report Type: Report from Study
  Country: US (occurrence: US)
  Receive Date: 20150715
  Receipt Date: 20150824
  Transmission Date: 20151125
  Serious: No
  Sender: FDA-Public Use
  Company Number: PHEH2014US013814

PATIENT
  Age: 49 Year
  Sex: Female

DRUGS (1)
  1. CLOZARIL [Suspect]
     Active Substance: CLOZAPINE
     Indication: SCHIZOPHRENIA
     Dosage: 100 MG, 1 AM  AND 3 HS
     Route: 048
     Dates: start: 20070523

REACTIONS (4)
  - Granulocyte count increased [Not Recovered/Not Resolved]
  - Memory impairment [Unknown]
  - White blood cell count increased [Not Recovered/Not Resolved]
  - Neutrophil count increased [Not Recovered/Not Resolved]

NARRATIVE: CASE EVENT DATE: 20140707
